FAERS Safety Report 25346871 (Version 1)
Quarter: 2025Q2

REPORT INFORMATION
  Report Type: Spontaneous
  Country: US (occurrence: US)
  Receive Date: 20250522
  Receipt Date: 20250522
  Transmission Date: 20250717
  Serious: No
  Sender: INSUD PHARMA
  Company Number: US-INSUD PHARMA-2505US03610

PATIENT

DRUGS (3)
  1. SLYND [Suspect]
     Active Substance: DROSPIRENONE
     Indication: Product used for unknown indication
     Route: 048
     Dates: start: 20250507
  2. SLYND [Suspect]
     Active Substance: DROSPIRENONE
     Route: 048
     Dates: start: 2024
  3. AUGMENTIN [Concomitant]
     Active Substance: AMOXICILLIN\CLAVULANATE POTASSIUM
     Indication: Sinusitis
     Dates: start: 20250507

REACTIONS (2)
  - Coital bleeding [Unknown]
  - Abnormal withdrawal bleeding [Recovered/Resolved]

NARRATIVE: CASE EVENT DATE: 20250501
